FAERS Safety Report 7422207-1 (Version None)
Quarter: 2011Q2

REPORT INFORMATION
  Report Type: 
  Country: None (occurrence: None)
  Receive Date: 20110418
  Receipt Date: 20110405
  Transmission Date: 20111010
  Serious: Yes (Other)
  Sender: FDA-Public Use
  Company Number: US-MYLANLABS-2011S1007212

PATIENT
  Age: 49 Year
  Sex: Female

DRUGS (8)
  1. ROPINIROLE [Concomitant]
     Dosage: AT BEDTIME
     Route: 065
  2. EMSAM [Interacting]
     Indication: BIPOLAR DISORDER
     Dosage: 6MG/24HR
     Route: 062
  3. WARFARIN [Suspect]
     Indication: THROMBOSIS PROPHYLAXIS
     Dosage: VARIABLE DOSE TO ACHIEVE INR OF 2-3; TAKEN 75MG/WEEK AT TIME OF REACTION
     Route: 065
  4. LAMOTRIGINE [Concomitant]
     Route: 065
  5. ALBUTEROL SULFATE AUTOHALER [Concomitant]
     Indication: WHEEZING
     Dosage: AS NEEDED
     Route: 055
  6. LORAZEPAM [Concomitant]
     Indication: ANXIETY
     Dosage: 1MG AS NEEDED
     Route: 065
  7. TIOTROPIUM BROMIDE [Concomitant]
     Route: 055
  8. RABEPRAZOLE SODIUM [Concomitant]
     Dosage: BEFORE BREAKFAST
     Route: 065

REACTIONS (2)
  - DRUG INTERACTION [None]
  - INTERNATIONAL NORMALISED RATIO INCREASED [None]
